FAERS Safety Report 9809337 (Version 1)
Quarter: 2014Q1

REPORT INFORMATION
  Report Type: Spontaneous
  Country: FR (occurrence: FR)
  Receive Date: 20140110
  Receipt Date: 20140110
  Transmission Date: 20141002
  Serious: Yes (Hospitalization)
  Sender: FDA-Public Use
  Company Number: FR-WATSON-2013-24569

PATIENT
  Age: 53 Year
  Sex: Male
  Weight: 141 kg

DRUGS (4)
  1. GABAPENTINE [Suspect]
     Indication: NEUROPATHY PERIPHERAL
     Dosage: 300 MG, BID
     Route: 048
     Dates: start: 20130414, end: 20130418
  2. GABAPENTINE [Suspect]
     Dosage: 300 MG, DAILY
     Route: 048
     Dates: start: 20130404, end: 20130413
  3. TAZOCILLINE [Concomitant]
     Indication: SEPSIS
     Dosage: UNK, UNKNOWN
     Route: 065
     Dates: start: 20130328, end: 20130415
  4. DALACINE                           /00166002/ [Concomitant]
     Indication: SEPSIS
     Dosage: UNK
     Dates: start: 20130407, end: 20130415

REACTIONS (2)
  - Pruritus [Recovered/Resolved]
  - Rash macular [Recovered/Resolved]
